FAERS Safety Report 6934697-9 (Version None)
Quarter: 2010Q3

REPORT INFORMATION
  Report Type: 
  Country: None (occurrence: None)
  Receive Date: 20100820
  Receipt Date: 20100812
  Transmission Date: 20110219
  Serious: Yes (Hospitalization)
  Sender: FDA-Public Use
  Company Number: JP-AMGEN-US314617

PATIENT
  Sex: Male
  Weight: 52 kg

DRUGS (15)
  1. ENBREL [Suspect]
     Indication: RHEUMATOID ARTHRITIS
     Route: 058
     Dates: start: 20061026, end: 20080104
  2. ENBREL [Suspect]
     Route: 058
     Dates: start: 20080128, end: 20080204
  3. OPALMON [Suspect]
     Indication: PRODUCT USED FOR UNKNOWN INDICATION
     Route: 048
     Dates: start: 20071114, end: 20080104
  4. OPALMON [Suspect]
     Route: 048
     Dates: start: 20080128
  5. RHEUMATREX [Suspect]
     Indication: RHEUMATOID ARTHRITIS
     Route: 048
     Dates: start: 20050901, end: 20060601
  6. ARAVA [Suspect]
     Indication: IMMUNOSUPPRESSION
     Route: 048
     Dates: start: 20060612, end: 20061204
  7. ARAVA [Suspect]
     Route: 048
     Dates: start: 20070303, end: 20080104
  8. ARAVA [Suspect]
     Route: 048
     Dates: start: 20080128
  9. METHOTREXATE [Suspect]
     Indication: RHEUMATOID ARTHRITIS
     Route: 048
     Dates: start: 20040901, end: 20050901
  10. MEDROL [Concomitant]
     Indication: INFLAMMATION
     Route: 048
     Dates: start: 20060104
  11. FOSAMAX [Concomitant]
     Indication: OSTEOPOROSIS
     Route: 048
     Dates: start: 20061019
  12. MUCOSTA [Concomitant]
     Indication: GASTRIC ULCER
     Route: 048
     Dates: start: 20060104
  13. TAKEPRON [Concomitant]
     Indication: GASTRIC ULCER
     Route: 048
     Dates: start: 20060104, end: 20070802
  14. ALFACALCIDOL [Concomitant]
     Indication: OSTEOPOROSIS
     Route: 048
     Dates: start: 20061019
  15. VOLTAREN [Concomitant]
     Indication: PAIN
     Route: 048
     Dates: start: 20060104, end: 20080104

REACTIONS (3)
  - INTERVERTEBRAL DISC PROTRUSION [None]
  - LEUKOENCEPHALOPATHY [None]
  - PRURITUS [None]
